FAERS Safety Report 8154486-X (Version None)
Quarter: 2012Q1

REPORT INFORMATION
  Report Type: 
  Country: None (occurrence: None)
  Receive Date: 20120221
  Receipt Date: 20120209
  Transmission Date: 20120608
  Serious: Yes (Life-Threatening, Hospitalization)
  Sender: FDA-Public Use
  Company Number: JP-TEVA-2011005562

PATIENT
  Sex: Female
  Weight: 48 kg

DRUGS (13)
  1. SULFAMETHOXAZOLE + TRIMETHOPRIM [Concomitant]
  2. BENDAMUSTINE [Suspect]
     Indication: MANTLE CELL LYMPHOMA
     Route: 042
     Dates: start: 20101221, end: 20101222
  3. BENDAMUSTINE [Suspect]
     Route: 042
     Dates: start: 20110304
  4. ACYCLOVIR [Concomitant]
  5. ITRACONAZOLE [Concomitant]
     Dates: start: 20110102, end: 20110411
  6. VALGANCICLOVIR HCL [Suspect]
     Indication: CYTOMEGALOVIRUS INFECTION
     Dosage: 900 MILLIGRAM;
     Route: 048
     Dates: start: 20110122, end: 20110404
  7. ENTECAVIR [Concomitant]
  8. URSODIOL [Concomitant]
     Dates: start: 20110425, end: 20110503
  9. GANCICLOVIR [Suspect]
     Dosage: 125 MILLIGRAM;
     Route: 042
     Dates: start: 20110524, end: 20110530
  10. PREDNISOLONE [Suspect]
     Indication: PROPHYLAXIS
     Dosage: 20 MILLIGRAM;
     Route: 048
     Dates: start: 20110425, end: 20110503
  11. GANCICLOVIR [Suspect]
     Indication: CYTOMEGALOVIRUS INFECTION
     Dosage: 500 MILLIGRAM;
     Route: 042
     Dates: start: 20110105, end: 20110121
  12. CYCLOSPORINE [Suspect]
     Indication: PANCYTOPENIA
     Dosage: 200 MILLIGRAM;
     Route: 048
     Dates: start: 20110210, end: 20110503
  13. DEXTROMETHORPHAN [Concomitant]
     Dates: start: 20110205, end: 20110503

REACTIONS (4)
  - HEPATITIS B [None]
  - PANCYTOPENIA [None]
  - CYTOMEGALOVIRUS INFECTION [None]
  - SEPSIS [None]
